FAERS Safety Report 19757863 (Version 1)
Quarter: 2021Q3

REPORT INFORMATION
  Report Type: Spontaneous
  Country: US (occurrence: US)
  Receive Date: 20210828
  Receipt Date: 20210828
  Transmission Date: 20211014
  Serious: Yes (Other)
  Sender: FDA-Public Use
  Company Number: US-ABBVIE-21K-163-4054699-00

PATIENT
  Age: 62 Year
  Sex: Male
  Weight: 104.42 kg

DRUGS (2)
  1. DUOPA [Suspect]
     Active Substance: CARBIDOPA\LEVODOPA
     Indication: PRODUCT USED FOR UNKNOWN INDICATION
     Dosage: STARTED FOR YEARS
     Route: 050
  2. DUOPA [Suspect]
     Active Substance: CARBIDOPA\LEVODOPA

REACTIONS (7)
  - General physical health deterioration [Not Recovered/Not Resolved]
  - Device material issue [Unknown]
  - Cataract [Not Recovered/Not Resolved]
  - Wheezing [Not Recovered/Not Resolved]
  - Device breakage [Unknown]
  - Device leakage [Not Recovered/Not Resolved]
  - Device kink [Not Recovered/Not Resolved]

NARRATIVE: CASE EVENT DATE: 20210802
